FAERS Safety Report 7210795-X (Version None)
Quarter: 2011Q1

REPORT INFORMATION
  Report Type: 
  Country: None (occurrence: None)
  Receive Date: 20110105
  Receipt Date: 20101025
  Transmission Date: 20110831
  Serious: Yes (Other)
  Sender: FDA-Public Use
  Company Number: PHHY2010GR75368

PATIENT

DRUGS (1)
  1. DEFEROXAMINE MESYLATE [Suspect]
     Dosage: MATERNAL DOSE: 50MG/KG 5 DAYS/WEEK
     Route: 064

REACTIONS (2)
  - PREMATURE BABY [None]
  - DRUG EXPOSURE DURING PREGNANCY [None]
